FAERS Safety Report 17981267 (Version 2)
Quarter: 2020Q4

REPORT INFORMATION
  Report Type: Report from Study
  Country: US (occurrence: US)
  Receive Date: 20200705
  Receipt Date: 20201102
  Transmission Date: 20210113
  Serious: Yes (Death, Life-Threatening, Other)
  Sender: FDA-Public Use
  Company Number: NVSC2020US184900

PATIENT
  Age: 63 Year
  Sex: Male

DRUGS (3)
  1. FLUDARABINE [Concomitant]
     Active Substance: FLUDARABINE PHOSPHATE
     Indication: CHEMOTHERAPY
     Dosage: UNK
     Route: 065
  2. KYMRIAH [Suspect]
     Active Substance: TISAGENLECLEUCEL
     Indication: DIFFUSE LARGE B-CELL LYMPHOMA
     Dosage: UNK UNK, ONCE/SINGLE
     Route: 041
     Dates: start: 20200910
  3. CYCLOPHOSPHAMIDE. [Concomitant]
     Active Substance: CYCLOPHOSPHAMIDE
     Indication: CHEMOTHERAPY
     Dosage: UNK
     Route: 065

REACTIONS (24)
  - Organ failure [Fatal]
  - Aggression [Unknown]
  - Cytokine release syndrome [Recovered/Resolved]
  - Aphasia [Unknown]
  - Urinary tract infection [Unknown]
  - Nervous system disorder [Fatal]
  - Neutropenia [Unknown]
  - Agitation [Unknown]
  - Respiratory failure [Unknown]
  - Delirium [Unknown]
  - Pseudomonas infection [Unknown]
  - Sinusitis [Unknown]
  - Staphylococcal infection [Unknown]
  - Infection [Unknown]
  - Cytopenia [Unknown]
  - Stenotrophomonas infection [Unknown]
  - Pyrexia [Unknown]
  - Thrombocytopenia [Unknown]
  - Candida infection [Unknown]
  - Depressed level of consciousness [Unknown]
  - BK virus infection [Unknown]
  - Neurotoxicity [Fatal]
  - Fungal infection [Unknown]
  - Lymphocyte count decreased [Unknown]
